FAERS Safety Report 8658007 (Version 2)
Quarter: 2012Q4

REPORT INFORMATION
  Report Type: 
  Country: CN (occurrence: US)
  Receive Date: 20120710
  Receipt Date: 20120917
  Transmission Date: 20130627
  Serious: Yes (Hospitalization)
  Sender: FDA-Public Use
  Company Number: US-BAYER-2012-068053

PATIENT
  Age: 18 Year
  Sex: Female
  Weight: 63.49 kg

DRUGS (4)
  1. YASMIN [Suspect]
     Indication: ACNE
     Dosage: UNK
     Dates: start: 20070406, end: 20070829
  2. PERCOCET [Concomitant]
     Indication: PLEURITIC PAIN
  3. PERCOCET [Concomitant]
     Indication: PAIN
  4. FENTANYL [Concomitant]
     Indication: PLEURITIC PAIN

REACTIONS (11)
  - Pulmonary embolism [None]
  - Pulmonary infarction [None]
  - Injury [None]
  - Pain [None]
  - Pleural effusion [None]
  - Abdominal pain upper [None]
  - Back pain [None]
  - Dyspnoea [None]
  - Nausea [None]
  - Decreased appetite [None]
  - Lung consolidation [None]
